FAERS Safety Report 12195064 (Version 1)
Quarter: 2016Q1

REPORT INFORMATION
  Report Type: Spontaneous
  Country: US (occurrence: US)
  Receive Date: 20160321
  Receipt Date: 20160321
  Transmission Date: 20160526
  Serious: No
  Sender: FDA-Public Use
  Company Number: US-TEVA-554096USA

PATIENT
  Sex: Male

DRUGS (1)
  1. ESCITALOPRAM [Suspect]
     Active Substance: ESCITALOPRAM OXALATE
     Indication: PRODUCT USED FOR UNKNOWN INDICATION
     Dosage: FREQUENCY NOT PROVIDED
     Route: 065

REACTIONS (6)
  - Confusional state [Unknown]
  - Mental disorder [Unknown]
  - Dizziness [Unknown]
  - Product substitution issue [Unknown]
  - Drug ineffective [Unknown]
  - Urinary hesitation [Unknown]
